FAERS Safety Report 21916393 (Version 1)
Quarter: 2023Q1

REPORT INFORMATION
  Report Type: Spontaneous
  Country: None (occurrence: US)
  Receive Date: 20230126
  Receipt Date: 20230126
  Transmission Date: 20230417
  Serious: No
  Sender: FDA-Public Use
  Company Number: US-Nephron Pharmaceuticals Corporation-2136999

PATIENT
  Age: 76 Year
  Sex: Male
  Weight: 86.364 kg

DRUGS (2)
  1. IPRATROPIUM BROMIDE [Suspect]
     Active Substance: IPRATROPIUM BROMIDE
     Indication: Asthma
     Route: 055
  2. RAMIPRIL [Concomitant]
     Active Substance: RAMIPRIL
     Route: 048

REACTIONS (3)
  - Cough [Recovered/Resolved]
  - Wheezing [Recovered/Resolved]
  - Chest discomfort [Recovered/Resolved]
